FAERS Safety Report 7248042-5 (Version None)
Quarter: 2011Q1

REPORT INFORMATION
  Report Type: 
  Country: None (occurrence: None)
  Receive Date: 20110127
  Receipt Date: 20100126
  Transmission Date: 20110831
  Serious: Yes (Other)
  Sender: FDA-Public Use
  Company Number: US-MYLANLABS-2010S1001417

PATIENT
  Sex: Female

DRUGS (9)
  1. PHENYTOIN SODIUM [Suspect]
     Indication: CONVULSION
     Route: 048
     Dates: start: 20091201, end: 20100101
  2. PHENYTOIN SODIUM CAP [Suspect]
     Indication: CONVULSION
     Route: 048
  3. PHENYTOIN SODIUM CAP [Suspect]
     Route: 048
  4. PROCARDIA [Concomitant]
  5. CARVEDILOL [Concomitant]
  6. KEPPRA [Concomitant]
  7. NEXIUM [Concomitant]
  8. PHENYTOIN SODIUM [Suspect]
     Route: 048
     Dates: start: 20091201, end: 20100101
  9. EFFEXOR XR [Concomitant]

REACTIONS (2)
  - CONVULSION [None]
  - DRUG EFFECT DECREASED [None]
